FAERS Safety Report 10602655 (Version 1)
Quarter: 2014Q4

REPORT INFORMATION
  Report Type: Spontaneous
  Country: GB (occurrence: GB)
  Receive Date: 20141124
  Receipt Date: 20141124
  Transmission Date: 20150529
  Serious: Yes (Other)
  Sender: FDA-Public Use
  Company Number: GB-GLAXOSMITHKLINE-GB2014023062

PATIENT

DRUGS (7)
  1. FOSTAIR [Concomitant]
  2. CYCLIZINE [Concomitant]
     Active Substance: CYCLIZINE
  3. VENTOLIN [Concomitant]
     Active Substance: ALBUTEROL SULFATE
  4. BUSCOPAN [Concomitant]
     Active Substance: BUTYLSCOPOLAMINE BROMIDE
  5. TRAMADOL [Concomitant]
     Active Substance: TRAMADOL
  6. NAPROXEN. [Concomitant]
     Active Substance: NAPROXEN
  7. ORLISTAT [Suspect]
     Active Substance: ORLISTAT
     Indication: WEIGHT DECREASED
     Route: 048
     Dates: start: 20141108

REACTIONS (1)
  - Gallbladder pain [Not Recovered/Not Resolved]

NARRATIVE: CASE EVENT DATE: 20141108
